FAERS Safety Report 5952768-0 (Version None)
Quarter: 2008Q4

REPORT INFORMATION
  Report Type: 
  Country: None (occurrence: None)
  Receive Date: 20081114
  Receipt Date: 20081106
  Transmission Date: 20090506
  Serious: Yes (Death)
  Sender: FDA-Public Use
  Company Number: TH-B.I. PHARMACEUTICALS,INC./RIDGEFIELD-2006-DE-04171GD

PATIENT

DRUGS (8)
  1. NEVIRAPINE [Suspect]
     Indication: HIV INFECTION
     Dosage: 200MG
  2. NEVIRAPINE [Suspect]
     Dosage: 400MG
  3. STAVUDINE [Suspect]
     Indication: HIV INFECTION
     Dosage: 30 MG OR 40 MG TWICE DAILY FOR BODY WEIGHT {/=60 KG AND } 60 KG, RESPECTIVELY
  4. LAMIVUDINE [Suspect]
     Indication: HIV INFECTION
     Dosage: 300MG
  5. RIFAMPICIN [Suspect]
     Indication: TUBERCULOSIS
  6. ISONIAZID [Suspect]
     Indication: TUBERCULOSIS
  7. ETHAMBUTOL HYDROCHLORIDE [Suspect]
     Indication: TUBERCULOSIS
  8. PYRAZINAMIDE [Suspect]
     Indication: TUBERCULOSIS

REACTIONS (6)
  - CACHEXIA [None]
  - DEATH [None]
  - MYCOBACTERIUM AVIUM COMPLEX INFECTION [None]
  - PARADOXICAL DRUG REACTION [None]
  - RASH [None]
  - TUBERCULOSIS [None]
